FAERS Safety Report 23276055 (Version 2)
Quarter: 2024Q1

REPORT INFORMATION
  Report Type: Spontaneous
  Country: US (occurrence: US)
  Receive Date: 20231208
  Receipt Date: 20240119
  Transmission Date: 20240410
  Serious: Yes (Disabling, Other)
  Sender: FDA-Public Use
  Company Number: US-HORIZON THERAPEUTICS-HZN-2023-010208

PATIENT

DRUGS (14)
  1. TEPEZZA [Suspect]
     Active Substance: TEPROTUMUMAB-TRBW
     Indication: Endocrine ophthalmopathy
     Dosage: FIRST INFUSION
     Route: 042
     Dates: start: 202108
  2. TEPEZZA [Suspect]
     Active Substance: TEPROTUMUMAB-TRBW
     Indication: Graves^ disease
     Dosage: 1905 MG, UNKNOWN INFUSION
     Route: 042
     Dates: start: 20211007
  3. TEPEZZA [Suspect]
     Active Substance: TEPROTUMUMAB-TRBW
     Dosage: 1905 MG, UNKNOWN INFUSION
     Route: 042
     Dates: start: 20211029
  4. TEPEZZA [Suspect]
     Active Substance: TEPROTUMUMAB-TRBW
     Dosage: 1895 MG, UNKNOWN INFUSION
     Route: 042
     Dates: start: 20211119
  5. TEPEZZA [Suspect]
     Active Substance: TEPROTUMUMAB-TRBW
     Dosage: 1905 MG, UNKNOWN INFUSION
     Route: 042
     Dates: start: 20211210
  6. TEPEZZA [Suspect]
     Active Substance: TEPROTUMUMAB-TRBW
     Dosage: 1924MG, LAST INFUSION
     Route: 042
     Dates: start: 20211230
  7. ESCITALOPRAM [Concomitant]
     Active Substance: ESCITALOPRAM OXALATE
     Dosage: 20 MG, QD
     Route: 048
  8. LEVOTHYROXINE [Concomitant]
     Active Substance: LEVOTHYROXINE\LEVOTHYROXINE SODIUM
     Dosage: 100 UG, QD
     Route: 048
  9. LIDOCAINE [Concomitant]
     Active Substance: LIDOCAINE
  10. LIOTHYRONINE [Concomitant]
     Active Substance: LIOTHYRONINE
     Dosage: 1 TABLET ON MON, WED + FRI
     Route: 048
  11. PROPRANOLOL [Concomitant]
     Active Substance: PROPRANOLOL HYDROCHLORIDE
     Dosage: 20 MG, QD
     Route: 048
  12. SELENIUM [Concomitant]
     Active Substance: SELENIUM
     Route: 048
  13. TRIAMCINOLONE [Concomitant]
     Active Substance: TRIAMCINOLONE
  14. HERBALS\TURMERIC [Concomitant]
     Active Substance: HERBALS\TURMERIC

REACTIONS (14)
  - Deafness permanent [Not Recovered/Not Resolved]
  - Disability [Not Recovered/Not Resolved]
  - Physical disability [Not Recovered/Not Resolved]
  - Pain [Not Recovered/Not Resolved]
  - Emotional distress [Not Recovered/Not Resolved]
  - Impaired quality of life [Not Recovered/Not Resolved]
  - Economic problem [Not Recovered/Not Resolved]
  - Injury [Not Recovered/Not Resolved]
  - Discomfort [Unknown]
  - Concomitant disease aggravated [Not Recovered/Not Resolved]
  - Anxiety [Not Recovered/Not Resolved]
  - Product quality issue [Unknown]
  - Tinnitus [Not Recovered/Not Resolved]
  - Exophthalmos [Unknown]

NARRATIVE: CASE EVENT DATE: 20211001
